FAERS Safety Report 7088558-8 (Version None)
Quarter: 2010Q4

REPORT INFORMATION
  Report Type: 
  Country: None (occurrence: None)
  Receive Date: 20101108
  Receipt Date: 20101029
  Transmission Date: 20110411
  Serious: Yes (Other)
  Sender: FDA-Public Use
  Company Number: FR-ASTRAZENECA-2010SE51976

PATIENT
  Sex: Female

DRUGS (4)
  1. XYLOCAINE [Suspect]
     Indication: LOCAL ANAESTHESIA
     Dosage: ONE SINGLE DOSE
     Dates: start: 20101028, end: 20101028
  2. AVLOCARDYL [Concomitant]
  3. SEROPLEX [Concomitant]
  4. AMITRIPTYLINE HCL [Concomitant]
     Dosage: 5 DROPS PER DAY

REACTIONS (6)
  - BRADYCARDIA [None]
  - HEADACHE [None]
  - MUSCLE CONTRACTURE [None]
  - OVERDOSE [None]
  - PALLOR [None]
  - TREMOR [None]
